FAERS Safety Report 6042667-0 (Version None)
Quarter: 2009Q1

REPORT INFORMATION
  Report Type: 
  Country: None (occurrence: None)
  Receive Date: 20090119
  Receipt Date: 20090108
  Transmission Date: 20090719
  Serious: Yes (Other)
  Sender: FDA-Public Use
  Company Number: PHHY2008JP30550

PATIENT
  Age: 70 Year
  Sex: Male

DRUGS (3)
  1. DIOVAN [Suspect]
     Indication: HYPERTENSION
     Dosage: 40 MG, QD
     Route: 048
     Dates: start: 20081030, end: 20081127
  2. CALBLOCK [Concomitant]
     Dosage: 16 MG
     Route: 048
     Dates: start: 20081030
  3. FLUITRAN [Concomitant]
     Dosage: 2 MG
     Route: 048
     Dates: start: 20081030

REACTIONS (2)
  - DIARRHOEA [None]
  - GASTROENTERITIS [None]
